FAERS Safety Report 13550597 (Version 1)
Quarter: 2017Q2

REPORT INFORMATION
  Report Type: Spontaneous
  Country: US (occurrence: US)
  Receive Date: 20170516
  Receipt Date: 20170516
  Transmission Date: 20170830
  Serious: Yes (Hospitalization)
  Sender: FDA-Public Use
  Company Number: None

PATIENT
  Age: 92 Year
  Sex: Female
  Weight: 115.4 kg

DRUGS (15)
  1. PRINIVIL [Concomitant]
     Active Substance: LISINOPRIL
  2. CELEXA [Concomitant]
     Active Substance: CITALOPRAM HYDROBROMIDE
  3. APAP [Concomitant]
     Active Substance: ACETAMINOPHEN
  4. LANTUS [Concomitant]
     Active Substance: INSULIN GLARGINE
  5. CLARITIN [Concomitant]
     Active Substance: LORATADINE
  6. ASA [Concomitant]
     Active Substance: ASPIRIN
  7. VITAMIN E [Concomitant]
     Active Substance: .ALPHA.-TOCOPHEROL
  8. VITAMIN B12 [Concomitant]
     Active Substance: CYANOCOBALAMIN
  9. COUMADIN [Concomitant]
     Active Substance: WARFARIN SODIUM
  10. ULTRAM [Suspect]
     Active Substance: TRAMADOL HYDROCHLORIDE
     Indication: ARTHRALGIA
     Dosage: RECENT 50MG NIGHTLY PRN PO
     Route: 048
  11. LASIX [Concomitant]
     Active Substance: FUROSEMIDE
  12. HUMALOG [Concomitant]
     Active Substance: INSULIN LISPRO
  13. VOLTAREN [Concomitant]
     Active Substance: DICLOFENAC SODIUM
  14. TUMS [Concomitant]
     Active Substance: CALCIUM CARBONATE
  15. SYNTHROID [Concomitant]
     Active Substance: LEVOTHYROXINE SODIUM

REACTIONS (1)
  - Unresponsive to stimuli [None]

NARRATIVE: CASE EVENT DATE: 20170224
